FAERS Safety Report 15811013 (Version 1)
Quarter: 2019Q1

REPORT INFORMATION
  Report Type: Spontaneous
  Country: US (occurrence: US)
  Receive Date: 20190111
  Receipt Date: 20190111
  Transmission Date: 20190417
  Serious: Yes (Other)
  Sender: FDA-Public Use
  Company Number: PHEH2019US001177

PATIENT
  Sex: Male

DRUGS (2)
  1. DECITABINE. [Suspect]
     Active Substance: DECITABINE
     Indication: CHRONIC MYELOID LEUKAEMIA
     Dosage: UNK UNK, CYCLIC
     Route: 065
     Dates: start: 201806, end: 201810
  2. VENETOCLAX. [Concomitant]
     Active Substance: VENETOCLAX
     Indication: CHRONIC MYELOID LEUKAEMIA
     Dosage: UNK UNK, CYCLIC
     Route: 065
     Dates: start: 201806, end: 201812

REACTIONS (1)
  - Drug ineffective [Unknown]
